FAERS Safety Report 9674773 (Version 1)
Quarter: 2013Q4

REPORT INFORMATION
  Report Type: Spontaneous
  Country: US (occurrence: US)
  Receive Date: 20131107
  Receipt Date: 20131107
  Transmission Date: 20140711
  Serious: Yes (Hospitalization, Other)
  Sender: FDA-Public Use
  Company Number: US-BAYER-2013-134655

PATIENT
  Age: 20 Year
  Sex: Female

DRUGS (4)
  1. YAZ [Suspect]
  2. PHENTERMINE [Concomitant]
     Dosage: 37.5 MG, UNK
  3. ADIPEX [Concomitant]
  4. STOOL SOFTENER [Concomitant]

REACTIONS (3)
  - Cholecystitis chronic [None]
  - Cholecystectomy [None]
  - Biliary dyskinesia [None]
